FAERS Safety Report 20580646 (Version 2)
Quarter: 2022Q2

REPORT INFORMATION
  Report Type: Spontaneous
  Country: HU (occurrence: HU)
  Receive Date: 20220311
  Receipt Date: 20220505
  Transmission Date: 20220721
  Serious: Yes (Hospitalization)
  Sender: FDA-Public Use
  Company Number: HU-UCBSA-2022013670

PATIENT
  Age: 66 Year
  Sex: Male
  Weight: 101 kg

DRUGS (10)
  1. KEPPRA [Suspect]
     Active Substance: LEVETIRACETAM
     Indication: Seizure prophylaxis
     Route: 065
  2. SODIUM CHLORIDE [Suspect]
     Active Substance: SODIUM CHLORIDE
     Indication: Clostridium difficile immunisation
     Dosage: UNK
     Route: 030
     Dates: start: 20180125
  3. MEFORAL [METFORMIN] [Concomitant]
     Indication: Diabetes mellitus
     Dosage: UNK
     Dates: start: 2014
  4. ASPIRIN [Concomitant]
     Active Substance: ASPIRIN
     Indication: Stenosis
     Dosage: UNK
     Dates: start: 2017
  5. ATORVASTATIN CALCIUM [Concomitant]
     Active Substance: ATORVASTATIN CALCIUM
     Indication: Hypertension
     Dosage: UNK
     Dates: start: 2015
  6. CARVEDILOL [Concomitant]
     Active Substance: CARVEDILOL
     Indication: Hypertension
     Dosage: UNK
     Dates: start: 2015
  7. DOXAZOSIN [Concomitant]
     Active Substance: DOXAZOSIN MESYLATE
     Indication: Hypertension
     Dosage: UNK
     Dates: start: 2015
  8. COVEREX AS KOMB [Concomitant]
     Indication: Hypertension
     Dosage: UNK
     Dates: start: 2015
  9. FENOTEROL HYDROBROMIDE\IPRATROPIUM BROMIDE [Concomitant]
     Active Substance: FENOTEROL HYDROBROMIDE\IPRATROPIUM BROMIDE
     Indication: Chronic obstructive pulmonary disease
     Dosage: UNK
     Dates: start: 2006
  10. CONTROLOC [Concomitant]
     Active Substance: PANTOPRAZOLE SODIUM
     Indication: Gastritis
     Dosage: UNK
     Dates: start: 2009

REACTIONS (4)
  - Generalised tonic-clonic seizure [Recovered/Resolved]
  - Loss of consciousness [Recovered/Resolved]
  - Treatment noncompliance [Unknown]
  - Product use in unapproved indication [Unknown]

NARRATIVE: CASE EVENT DATE: 20171201
